FAERS Safety Report 23778986 (Version 2)
Quarter: 2024Q2

REPORT INFORMATION
  Report Type: Other
  Country: CA (occurrence: CA)
  Receive Date: 20240424
  Receipt Date: 20240425
  Transmission Date: 20240716
  Serious: Yes (Death)
  Sender: FDA-Public Use
  Company Number: CA-PFIZER INC-202400092821

PATIENT

DRUGS (2)
  1. METHOTREXATE SODIUM [Interacting]
     Active Substance: METHOTREXATE SODIUM
     Indication: Chemotherapy
     Route: 065
  2. PENICILLIN [Interacting]
     Active Substance: PENICILLIN
     Indication: Chemotherapy
     Route: 065

REACTIONS (2)
  - Drug interaction [Fatal]
  - Death [Fatal]
